FAERS Safety Report 6313804-5 (Version None)
Quarter: 2009Q3

REPORT INFORMATION
  Report Type: 
  Country: None (occurrence: None)
  Receive Date: 20090818
  Receipt Date: 20090428
  Transmission Date: 20100115
  Serious: No
  Sender: FDA-Public Use
  Company Number: US-BRISTOL-MYERS SQUIBB COMPANY-14603807

PATIENT
  Age: 52 Year
  Sex: Male
  Weight: 98 kg

DRUGS (8)
  1. REYATAZ [Suspect]
     Dates: start: 20080901
  2. PRAVACHOL [Concomitant]
  3. LEXIVA [Concomitant]
  4. VIREAD [Concomitant]
  5. NORVIR [Concomitant]
  6. EPIVIR [Concomitant]
  7. FISH OIL [Concomitant]
  8. CLARINEX [Concomitant]

REACTIONS (1)
  - NEPHROLITHIASIS [None]
